FAERS Safety Report 18496604 (Version 1)
Quarter: 2020Q4

REPORT INFORMATION
  Report Type: Spontaneous
  Country: US (occurrence: US)
  Receive Date: 20201112
  Receipt Date: 20201112
  Transmission Date: 20210114
  Serious: Yes (Disabling)
  Sender: FDA-Public Use
  Company Number: None

PATIENT
  Age: 36 Year
  Sex: Female
  Weight: 157.5 kg

DRUGS (14)
  1. SPIRONOLACTONE. [Concomitant]
     Active Substance: SPIRONOLACTONE
  2. AIMOVIG [Suspect]
     Active Substance: ERENUMAB-AOOE
     Indication: MIGRAINE
     Dosage: ?          OTHER FREQUENCY:EVERY 28 DAYS;OTHER ROUTE:SUBDURAL INJECTION?
     Dates: start: 20200816, end: 20201109
  3. LAMICTAL [Concomitant]
     Active Substance: LAMOTRIGINE
  4. MAG OXIDE [Concomitant]
     Active Substance: MAGNESIUM OXIDE
  5. LAMOTRIGINE. [Concomitant]
     Active Substance: LAMOTRIGINE
  6. ONDANSETRON [Concomitant]
     Active Substance: ONDANSETRON
  7. DICLOFENAC SODIUM. [Concomitant]
     Active Substance: DICLOFENAC SODIUM
  8. ESOMEPRAZOLE. [Concomitant]
     Active Substance: ESOMEPRAZOLE MAGNESIUM
  9. UBRELVY [Concomitant]
     Active Substance: UBROGEPANT
  10. METOCLOPRAMIDE. [Concomitant]
     Active Substance: METOCLOPRAMIDE
  11. FOLIC ACID. [Concomitant]
     Active Substance: FOLIC ACID
  12. LO LOESTRIN FE [Concomitant]
     Active Substance: ETHINYL ESTRADIOL\NORETHINDRONE ACETATE
  13. AMLODIPINE [Concomitant]
     Active Substance: AMLODIPINE BESYLATE
  14. PREGABALIN. [Concomitant]
     Active Substance: PREGABALIN

REACTIONS (6)
  - Dysmenorrhoea [None]
  - Pelvic pain [None]
  - Oligomenorrhoea [None]
  - Menorrhagia [None]
  - Menstrual disorder [None]
  - Therapy interrupted [None]

NARRATIVE: CASE EVENT DATE: 20200920
